FAERS Safety Report 21467806 (Version 1)
Quarter: 2022Q4

REPORT INFORMATION
  Report Type: Spontaneous
  Country: US (occurrence: US)
  Receive Date: 20221017
  Receipt Date: 20221017
  Transmission Date: 20230113
  Serious: No
  Sender: FDA-Public Use
  Company Number: US-ALLERGAN-2219688US

PATIENT
  Sex: Female

DRUGS (1)
  1. LINZESS [Suspect]
     Active Substance: LINACLOTIDE
     Indication: Constipation
     Dosage: 1 DF, QD
     Route: 048
     Dates: start: 20220530, end: 20220609

REACTIONS (6)
  - Pain in jaw [Recovering/Resolving]
  - Mastication disorder [Recovering/Resolving]
  - Stomatitis [Recovering/Resolving]
  - Gingival abscess [Recovering/Resolving]
  - Gingival pain [Recovering/Resolving]
  - Off label use [Unknown]

NARRATIVE: CASE EVENT DATE: 20220607
